FAERS Safety Report 6970782-3 (Version None)
Quarter: 2010Q3

REPORT INFORMATION
  Report Type: 
  Country: None (occurrence: None)
  Receive Date: 20100908
  Receipt Date: 20100901
  Transmission Date: 20110219
  Serious: Yes (Hospitalization)
  Sender: FDA-Public Use
  Company Number: A0869888A

PATIENT
  Age: 51 Year
  Sex: Male
  Weight: 96.4 kg

DRUGS (7)
  1. AVANDIA [Suspect]
     Dosage: 4MG TWICE PER DAY
     Route: 048
     Dates: start: 20030101, end: 20070101
  2. GLUCOPHAGE [Concomitant]
  3. COZAAR [Concomitant]
  4. DYAZIDE [Concomitant]
  5. PINDOLOL [Concomitant]
  6. MAXZIDE [Concomitant]
  7. HYZAAR [Concomitant]

REACTIONS (1)
  - CEREBROVASCULAR ACCIDENT [None]
